FAERS Safety Report 8889498 (Version 1)
Quarter: 2012Q4

REPORT INFORMATION
  Report Type: 
  Country: US (occurrence: US)
  Receive Date: 20121107
  Receipt Date: 20121107
  Transmission Date: 20130627
  Serious: No
  Sender: FDA-Public Use
  Company Number: US-009507513-1211USA000644

PATIENT
  Age: 27 Year
  Sex: Female
  Weight: 81.63 kg

DRUGS (1)
  1. IMPLANON [Suspect]
     Indication: CONTRACEPTION
     Dosage: frequency : 3 years
     Route: 059
     Dates: start: 20120607

REACTIONS (1)
  - Amenorrhoea [Not Recovered/Not Resolved]
